FAERS Safety Report 9486073 (Version 4)
Quarter: 2013Q4

REPORT INFORMATION
  Report Type: Report from Study
  Country: JP (occurrence: JP)
  Receive Date: 20130829
  Receipt Date: 20131007
  Transmission Date: 20140711
  Serious: Yes (Life-Threatening, Hospitalization, Disabling, Other)
  Sender: FDA-Public Use
  Company Number: JP-CELGENEUS-087-50794-13040034

PATIENT
  Age: 75 Year
  Sex: Male
  Weight: 55 kg

DRUGS (38)
  1. VIDAZA [Suspect]
     Indication: MYELODYSPLASTIC SYNDROME
     Dosage: 75 MILLIGRAM/SQ. METER
     Route: 041
     Dates: start: 20121011, end: 20121018
  2. VIDAZA [Suspect]
     Dosage: 75 MILLIGRAM/SQ. METER
     Route: 041
     Dates: start: 20121120, end: 20121128
  3. VIDAZA [Suspect]
     Route: 065
     Dates: start: 20130308, end: 20130315
  4. VIDAZA [Suspect]
     Route: 065
     Dates: start: 20130415, end: 20130422
  5. VIDAZA [Suspect]
     Route: 065
     Dates: start: 20130603, end: 20130610
  6. VIDAZA [Suspect]
     Route: 065
     Dates: start: 20130805, end: 20130806
  7. LANSOPRAZOLE [Concomitant]
     Indication: PRODUCT USED FOR UNKNOWN INDICATION
     Route: 065
     Dates: start: 20121010
  8. NOVAMIN [Concomitant]
     Indication: PRODUCT USED FOR UNKNOWN INDICATION
     Route: 065
     Dates: start: 20121010, end: 20121017
  9. NOVAMIN [Concomitant]
     Route: 065
     Dates: start: 20121120, end: 20121126
  10. NOVAMIN [Concomitant]
     Route: 065
     Dates: start: 20130307, end: 20130315
  11. NOVAMIN [Concomitant]
     Route: 065
     Dates: start: 20130415, end: 20130422
  12. NOVAMIN [Concomitant]
     Route: 065
     Dates: start: 20130603, end: 20130610
  13. NOVAMIN [Concomitant]
     Route: 065
     Dates: start: 20130805, end: 20130806
  14. NASEA [Concomitant]
     Indication: PRODUCT USED FOR UNKNOWN INDICATION
     Route: 065
     Dates: start: 20121010, end: 20121018
  15. NASEA [Concomitant]
     Route: 065
     Dates: start: 20121120, end: 20121128
  16. NASEA [Concomitant]
     Route: 065
     Dates: start: 20130308, end: 20130315
  17. NASEA [Concomitant]
     Route: 065
     Dates: start: 20130415, end: 20130422
  18. NASEA [Concomitant]
     Route: 065
     Dates: start: 20130603, end: 20130610
  19. NASEA [Concomitant]
     Route: 065
     Dates: start: 20130805, end: 20130806
  20. MAGLAX [Concomitant]
     Indication: PRODUCT USED FOR UNKNOWN INDICATION
     Route: 065
     Dates: start: 20121018
  21. PURSENNID [Concomitant]
     Indication: PRODUCT USED FOR UNKNOWN INDICATION
     Route: 065
     Dates: start: 20121018, end: 20121129
  22. PURSENNID [Concomitant]
     Route: 065
     Dates: start: 20130115, end: 20130515
  23. NEUTROGIN [Concomitant]
     Indication: PRODUCT USED FOR UNKNOWN INDICATION
     Route: 065
     Dates: start: 20121025, end: 20121109
  24. NEUTROGIN [Concomitant]
     Route: 065
     Dates: start: 20121219, end: 20121221
  25. NEUTROGIN [Concomitant]
     Route: 065
     Dates: start: 20130329, end: 20130329
  26. INFLUENZA HA VACCINE [Concomitant]
     Indication: PRODUCT USED FOR UNKNOWN INDICATION
     Route: 065
     Dates: start: 20121112, end: 20121112
  27. MAXIPIME [Concomitant]
     Indication: PRODUCT USED FOR UNKNOWN INDICATION
     Route: 065
     Dates: start: 20130101, end: 20130103
  28. CODEINE PHOSPHATE HYDRATE [Concomitant]
     Indication: PRODUCT USED FOR UNKNOWN INDICATION
     Route: 065
     Dates: start: 20130113, end: 20130515
  29. URALYT [Concomitant]
     Indication: PRODUCT USED FOR UNKNOWN INDICATION
     Route: 065
     Dates: start: 20130307, end: 20130315
  30. URALYT [Concomitant]
     Route: 065
     Dates: start: 20130415, end: 20130422
  31. URALYT [Concomitant]
     Route: 065
     Dates: start: 20130603, end: 20130610
  32. URALYT [Concomitant]
     Route: 065
     Dates: start: 20130805, end: 20130806
  33. ZYLORIC [Concomitant]
     Indication: PRODUCT USED FOR UNKNOWN INDICATION
     Route: 065
     Dates: start: 20130307, end: 20130315
  34. ZYLORIC [Concomitant]
     Route: 065
     Dates: start: 20130415, end: 20130422
  35. ZYLORIC [Concomitant]
     Route: 065
     Dates: start: 20130603, end: 20130610
  36. ZYLORIC [Concomitant]
     Route: 065
     Dates: start: 20130805, end: 20130806
  37. CLARITHROMYCIN [Concomitant]
     Indication: PRODUCT USED FOR UNKNOWN INDICATION
     Route: 065
     Dates: start: 20130420, end: 20130426
  38. TULOBUTEROL [Concomitant]
     Indication: PRODUCT USED FOR UNKNOWN INDICATION
     Route: 065
     Dates: start: 20130420

REACTIONS (9)
  - Neutropenia [Recovered/Resolved]
  - Pneumonia [Recovered/Resolved]
  - Neutropenia [Recovered/Resolved]
  - Neutropenia [Recovered/Resolved]
  - Neutropenia [Recovered/Resolved]
  - Neutropenia [Recovered/Resolved]
  - Pneumonia [Recovered/Resolved]
  - Pneumonia [Recovered/Resolved]
  - Dyspnoea [Recovered/Resolved]
